FAERS Safety Report 18633578 (Version 1)
Quarter: 2020Q4

REPORT INFORMATION
  Report Type: Spontaneous
  Country: US (occurrence: US)
  Receive Date: 20201218
  Receipt Date: 20201218
  Transmission Date: 20210114
  Serious: No
  Sender: FDA-Public Use
  Company Number: US-009507513-2012USA005130

PATIENT
  Sex: Female

DRUGS (2)
  1. MAXALT [Suspect]
     Active Substance: RIZATRIPTAN BENZOATE
     Indication: HEADACHE
     Dosage: A WHILE AGO, PROBABLY 2 YEARS. REPEAT ONCE AFTER 4 HOURS IF NEEDED
     Route: 048
     Dates: start: 2018
  2. RIZATRIPTAN BENZOATE. [Suspect]
     Active Substance: RIZATRIPTAN BENZOATE
     Indication: HEADACHE
     Dosage: A WHILE AGO, PROBABLY 2 YEARS. REPEAT ONCE AFTER 4 HOURS IF NEEDED
     Route: 048
     Dates: start: 2018

REACTIONS (3)
  - Fatigue [Not Recovered/Not Resolved]
  - Abdominal pain [Not Recovered/Not Resolved]
  - Yawning [Not Recovered/Not Resolved]

NARRATIVE: CASE EVENT DATE: 2018
